FAERS Safety Report 17178434 (Version 1)
Quarter: 2019Q4

REPORT INFORMATION
  Report Type: Spontaneous
  Country: US (occurrence: US)
  Receive Date: 20191219
  Receipt Date: 20191219
  Transmission Date: 20200122
  Serious: Yes (Other)
  Sender: FDA-Public Use
  Company Number: US-GILEAD-2019-0442641

PATIENT
  Age: 56 Year
  Sex: Male

DRUGS (4)
  1. ZEPATIER [Concomitant]
     Active Substance: ELBASVIR\GRAZOPREVIR
     Indication: HEPATITIS C
     Dosage: UNK
  2. TIVICAY [Concomitant]
     Active Substance: DOLUTEGRAVIR SODIUM
  3. EDURANT [Concomitant]
     Active Substance: RILPIVIRINE HYDROCHLORIDE
  4. TRUVADA [Suspect]
     Active Substance: EMTRICITABINE\TENOFOVIR DISOPROXIL FUMARATE
     Indication: HIV INFECTION
     Route: 065

REACTIONS (7)
  - Pain in extremity [Unknown]
  - Osteonecrosis [Unknown]
  - Anxiety [Unknown]
  - Oral candidiasis [Not Recovered/Not Resolved]
  - Bone density decreased [Unknown]
  - Pain [Unknown]
  - Neuropathy peripheral [Unknown]
